FAERS Safety Report 10399170 (Version 1)
Quarter: 2014Q1

REPORT INFORMATION
  Report Type: Spontaneous
  Country: US (occurrence: None)
  Receive Date: 20130815
  Receipt Date: 20130815
  Transmission Date: 20141002
  Serious: Yes (Hospitalization, Other)
  Sender: FDA-Public Use
  Company Number: ADR-2013-00729

PATIENT
  Age: 44 Year
  Sex: Male

DRUGS (1)
  1. LIORESAL [Suspect]
     Indication: MUSCLE SPASTICITY
     Dosage: 315.3 MCG/DAY

REACTIONS (5)
  - Pyrexia [None]
  - Hypertension [None]
  - Muscle spasms [None]
  - Muscle spasticity [None]
  - Autonomic dysreflexia [None]
